FAERS Safety Report 11422351 (Version 18)
Quarter: 2019Q1

REPORT INFORMATION
  Report Type: Spontaneous
  Country: US (occurrence: US)
  Receive Date: 20150827
  Receipt Date: 20190329
  Transmission Date: 20190417
  Serious: Yes (Hospitalization, Other)
  Sender: FDA-Public Use
  Company Number: US-PFIZER INC-2015214404

PATIENT
  Age: 45 Year
  Sex: Female
  Weight: 73 kg

DRUGS (55)
  1. RAPAMUNE [Suspect]
     Active Substance: SIROLIMUS
     Indication: IMMUNOSUPPRESSION
     Dosage: 2 MG, 1X/DAY
     Route: 048
  2. RAPAMUNE [Suspect]
     Active Substance: SIROLIMUS
     Dosage: 2 MG, DAILY(STRENGTH1MG, 2 TABLETS DAILY)
  3. PROGRAF [Concomitant]
     Active Substance: TACROLIMUS\TACROLIMUS ANHYDROUS
     Dosage: 3 MG, 2X/DAY [1 MG, 3 CAPSULES BY MOUTH EVERY 12 HOURS]
     Route: 048
  4. PROGRAF [Concomitant]
     Active Substance: TACROLIMUS\TACROLIMUS ANHYDROUS
     Dosage: 4 MG, 2X/DAY (1 MG CAPSULE 4 CAPSULE BY MOUTH EVERY 12 HOURS)
     Route: 048
  5. LANTUS [Concomitant]
     Active Substance: INSULIN GLARGINE
     Dosage: 116 IU, 1X/DAY (EVERY EVENING AT BEDTIME)
     Route: 058
  6. ELIQUIS [Concomitant]
     Active Substance: APIXABAN
     Indication: PULMONARY EMBOLISM
     Dosage: 2.5 MG, 2X/DAY (TWICE DAILY/FOR 7 DAYS)
     Route: 048
  7. MAGNESIUM OXIDE. [Concomitant]
     Active Substance: MAGNESIUM OXIDE
     Dosage: 1 DF, DAILY
  8. EDECRIN [Concomitant]
     Active Substance: ETHACRYNIC ACID
     Dosage: 25 MG, DAILY (UNTIL 2-3 POUND WEIGHT LOSS)
     Route: 048
     Dates: start: 20170912
  9. CARVEDILOL. [Concomitant]
     Active Substance: CARVEDILOL
     Dosage: 25 MG (ONE TABLET), 2X/DAY
     Route: 048
  10. CATAPRES [Concomitant]
     Active Substance: CLONIDINE HYDROCHLORIDE
     Indication: HYPERTENSION
     Dosage: 0.1 MG, AS NEEDED (EVERY 4 (FOUR) HOURS )
     Route: 048
  11. LEXAPRO [Concomitant]
     Active Substance: ESCITALOPRAM OXALATE
     Dosage: 10 MG, DAILY
     Route: 048
  12. RAPAMUNE [Suspect]
     Active Substance: SIROLIMUS
     Indication: PROPHYLAXIS AGAINST TRANSPLANT REJECTION
     Dosage: 3 MG, DAILY (1 MG 3 TABS PO DAILY/1 MG TABLET, TAKE 3 TABLETS DAILY)
     Route: 048
  13. DOXAZOSIN [Concomitant]
     Active Substance: DOXAZOSIN\DOXAZOSIN MESYLATE
     Dosage: 4 MG, 2X/DAY
     Route: 048
  14. PRAVASTATIN. [Concomitant]
     Active Substance: PRAVASTATIN
     Indication: HYPERLIPIDAEMIA
     Dosage: 40 MG (TWO TABLETS), 1X/DAY (ONCE DAILY AT BEDTIME)
  15. LOSARTAN HYDROCHLOROTHIAZIDE [Concomitant]
     Active Substance: HYDROCHLOROTHIAZIDE\LOSARTAN POTASSIUM
     Indication: HYPERTENSION
     Dosage: 1 DF, DAILY (LOSARTAN 100 MG/HYDROCHLOROTHIAZIDE 25 MG)
     Route: 048
  16. ACETAMINOPHEN. [Concomitant]
     Active Substance: ACETAMINOPHEN
     Dosage: 500 MG, AS NEEDED (EVERY 8 HOURS)
     Route: 048
  17. CATAPRES-TTS [Concomitant]
     Active Substance: CLONIDINE
     Dosage: 0.1 MG, UNK [24 HR WEEKLY]
     Route: 062
  18. INSULIN LISPRO [Concomitant]
     Active Substance: INSULIN LISPRO
     Dosage: 6 IU/ML, UNK (BEFORE EACH MEAL)
     Route: 058
  19. RAPAMUNE [Suspect]
     Active Substance: SIROLIMUS
     Dosage: 1 MG, UNK (QTY90)
  20. METOPROLOL SUCCINATE. [Concomitant]
     Active Substance: METOPROLOL SUCCINATE
     Dosage: 100 MG, 2X/DAY
     Route: 048
  21. CITRACAL PLUS D [Concomitant]
     Dosage: 1 DF, DAILY (CALCIUM/CHOLECALCIFEROL 250/200)
     Route: 048
  22. CITRACAL PLUS D [Concomitant]
     Dosage: 1 DF, DAILY [CALCIUM CITRATE: 250 MG/COLECALCIFEROL: 500 UNIT]
     Route: 048
  23. CHLORTHALIDONE. [Concomitant]
     Active Substance: CHLORTHALIDONE
     Indication: HYPERTENSION
     Dosage: 12.5 MG, DAILY [0.5 TABLET BY MOUTH DAILY]
     Route: 048
  24. ASPIRIN. [Concomitant]
     Active Substance: ASPIRIN
     Dosage: 81 MG, DAILY
     Route: 048
  25. CATAPRES-TTS [Concomitant]
     Active Substance: CLONIDINE
     Dosage: 1 PATCH WEEKLY ON DRY, CLEANED SKIN EVERY WEEK
     Route: 062
  26. COREG [Concomitant]
     Active Substance: CARVEDILOL
     Dosage: 25 MG, 2X/DAY (FOR 7 DAYS)
     Route: 048
  27. LANTUS [Concomitant]
     Active Substance: INSULIN GLARGINE
     Dosage: 29 UNITS AT BEDTIME
     Route: 058
  28. VITAMIN D2 [Concomitant]
     Active Substance: ERGOCALCIFEROL
     Dosage: 50000 IU, WEEKLY
     Route: 048
  29. LAC-HYDRIN [Concomitant]
     Active Substance: AMMONIUM LACTATE
     Indication: DRY SKIN
     Dosage: UNK , AS NEEDED
     Route: 061
  30. MICROZIDE [Concomitant]
     Active Substance: HYDROCHLOROTHIAZIDE
     Indication: BLOOD PRESSURE DECREASED
     Dosage: 25 MG, DAILY (HAS BEEN TAKING TWICE DAILY UNLESS BP IS LOW)
     Route: 048
  31. PRINIVIL [Concomitant]
     Active Substance: LISINOPRIL
     Dosage: 30 MG, DAILY (20MG AM AND 10MG PM)
     Route: 048
  32. ZESTRIL [Concomitant]
     Active Substance: LISINOPRIL
     Dosage: 30 MG, DAILY (TAKE TWO CAPS BY MOUTH IN THE MORNING AND ONE CAP AT NIGHT. (20MG AM AND 10MG PM))
     Route: 048
  33. PROGRAF [Concomitant]
     Active Substance: TACROLIMUS\TACROLIMUS ANHYDROUS
     Dosage: 5 MG, 2X/DAY(EVERY 12 HOURS)
     Route: 048
  34. DOXAZOSIN [Concomitant]
     Active Substance: DOXAZOSIN\DOXAZOSIN MESYLATE
     Dosage: 4 MG, DAILY
     Route: 048
  35. ALCOHOL WIPE [Concomitant]
     Active Substance: ISOPROPYL ALCOHOL
     Dosage: UNK, 4X/DAY
  36. RAPAMUNE [Suspect]
     Active Substance: SIROLIMUS
     Dosage: 1.5 MG, DAILY
     Route: 048
  37. EDECRIN [Concomitant]
     Active Substance: ETHACRYNIC ACID
     Dosage: 50 MG, 2X/DAY [TWO TABLETS TWICE DAILY UNTIL LOSE 5 POUNDS]
  38. RAPAMUNE [Suspect]
     Active Substance: SIROLIMUS
     Dosage: 0.5 MG, DAILY
     Route: 048
  39. RAPAMUNE [Suspect]
     Active Substance: SIROLIMUS
     Dosage: 1 MG, DAILY
     Route: 048
  40. PROGRAF [Concomitant]
     Active Substance: TACROLIMUS\TACROLIMUS ANHYDROUS
     Dosage: 0.5 MG, 2X/DAY (0.5 MG CAPSULE 1 CAPSULE BY MOUTH EVERY 12 HOURS)
     Route: 048
  41. PROGRAF [Concomitant]
     Active Substance: TACROLIMUS\TACROLIMUS ANHYDROUS
     Dosage: 4 MG, 2X/DAY (TAKE 4 CAPSULE (4 MG TOTAL) BY MOUTH EVERY 12 (TWELVE) HOURS)
     Route: 048
  42. LANTUS [Concomitant]
     Active Substance: INSULIN GLARGINE
     Dosage: 34 IU, 1X/DAY [EVERY EVENING AT BEDTIME]
     Route: 058
  43. LANTUS [Concomitant]
     Active Substance: INSULIN GLARGINE
     Dosage: 20 IU/ML, 1X/DAY
  44. LISINOPRIL. [Concomitant]
     Active Substance: LISINOPRIL
     Dosage: 20 MG, DAILY
     Route: 048
  45. TACROLIMUS. [Concomitant]
     Active Substance: TACROLIMUS
     Indication: IMMUNOSUPPRESSION
     Dosage: 8 MG, 2X/DAY (EVERY 12 HOURS)
     Route: 048
  46. CLONIDINE. [Concomitant]
     Active Substance: CLONIDINE
     Dosage: 0.1 MG, UNK (24 HR WEEKLY)
     Route: 062
  47. HCTZ [Concomitant]
     Active Substance: HYDROCHLOROTHIAZIDE
     Dosage: 25 MG (ONE TABLET), DAILY
     Route: 048
  48. LISINOPRIL. [Concomitant]
     Active Substance: LISINOPRIL
     Dosage: 20 MG, 2X/DAY (TWICE DAILY)
     Route: 048
  49. EDECRIN [Concomitant]
     Active Substance: ETHACRYNIC ACID
     Dosage: 50 MG, DAILY [DECREASE TO TWO TABLETS ONCE DAILY]
  50. VITAMIN D2 [Concomitant]
     Active Substance: ERGOCALCIFEROL
     Indication: PROPHYLAXIS
     Dosage: ONE CAPSULE (50000 IU) TWICE A DAY ONCE A WEEK ON MONDAY
     Route: 048
  51. NOVOLOG [Concomitant]
     Active Substance: INSULIN ASPART
     Dosage: UNK [SLIDING SCALE]
     Route: 058
  52. HYZAAR [Concomitant]
     Active Substance: HYDROCHLOROTHIAZIDE\LOSARTAN POTASSIUM
     Dosage: 1 DF, DAILY [HYDROCHLOROTHIAZIDE 25 MG, LOSARTAN 100 MG]
     Route: 048
  53. NEXIUM [Concomitant]
     Active Substance: ESOMEPRAZOLE MAGNESIUM
     Dosage: 20 MG, DAILY
     Route: 048
  54. HUMALOG KWIKPEN [Concomitant]
     Active Substance: INSULIN LISPRO
     Dosage: 6 IU, UNK (BEFORE EACH MEAL)
     Route: 058
  55. PRAVACHOL [Concomitant]
     Active Substance: PRAVASTATIN SODIUM
     Dosage: 40 MG, 1X/DAY (2 TABLETS BY MOUTH EVERY EVENING)
     Route: 048

REACTIONS (19)
  - Renal failure [Unknown]
  - Drug ineffective for unapproved indication [Unknown]
  - Oedema peripheral [Recovering/Resolving]
  - Diabetes mellitus [Unknown]
  - Sleep apnoea syndrome [Unknown]
  - Cardiac disorder [Unknown]
  - Pericardial effusion [Unknown]
  - Hypertension [Recovering/Resolving]
  - Spinal cord injury [Unknown]
  - End stage renal disease [Unknown]
  - Heart transplant rejection [Not Recovered/Not Resolved]
  - Condition aggravated [Not Recovered/Not Resolved]
  - Cardiac failure [Unknown]
  - Abdominal distension [Unknown]
  - Malaise [Not Recovered/Not Resolved]
  - Cardiac failure congestive [Unknown]
  - Impaired work ability [Unknown]
  - Diarrhoea [Recovered/Resolved]
  - Pain [Unknown]

NARRATIVE: CASE EVENT DATE: 20100930
